FAERS Safety Report 26170609 (Version 1)
Quarter: 2025Q4

REPORT INFORMATION
  Report Type: Spontaneous
  Country: ID (occurrence: ID)
  Receive Date: 20251217
  Receipt Date: 20251217
  Transmission Date: 20260118
  Serious: Yes (Other)
  Sender: NOVARTIS
  Company Number: ID-002147023-NVSC2025ID191270

PATIENT
  Age: 59 Year
  Sex: Male

DRUGS (3)
  1. SECUKINUMAB [Suspect]
     Active Substance: SECUKINUMAB
     Indication: Psoriasis
     Dosage: 150 MG
     Route: 065
  2. METHYLPREDNISOLONE [Concomitant]
     Active Substance: METHYLPREDNISOLONE
     Indication: Product used for unknown indication
     Dosage: 1 MG / KGBW
     Route: 065
  3. METHOTREXATE SODIUM [Concomitant]
     Active Substance: METHOTREXATE SODIUM
     Indication: Eczema
     Dosage: 15 MG, QW
     Route: 065

REACTIONS (12)
  - Dental gangrene [Unknown]
  - Dermatopathic lymphadenopathy [Unknown]
  - Lymphadenopathy [Unknown]
  - Pulpless tooth [Unknown]
  - Depression [Unknown]
  - Oedema peripheral [Unknown]
  - Gingivitis [Unknown]
  - Tooth loss [Unknown]
  - Erythrodermic psoriasis [Unknown]
  - Secretion discharge [Unknown]
  - Gait disturbance [Unknown]
  - Dysuria [Unknown]
